FAERS Safety Report 7472582-7 (Version None)
Quarter: 2011Q2

REPORT INFORMATION
  Report Type: 
  Country: None (occurrence: None)
  Receive Date: 20110511
  Receipt Date: 20110427
  Transmission Date: 20111010
  Serious: Yes (Hospitalization)
  Sender: FDA-Public Use
  Company Number: GB-MYLANLABS-2011S1009025

PATIENT
  Age: 21 Year
  Sex: Male

DRUGS (5)
  1. RISPERIDONE [Suspect]
     Indication: SCHIZOPHRENIA
  2. CLOZAPINE [Suspect]
     Indication: PRODUCT USED FOR UNKNOWN INDICATION
  3. QUETIAPINE [Suspect]
     Indication: SCHIZOPHRENIA
  4. AMISULPRIDE [Suspect]
     Indication: SCHIZOPHRENIA
  5. HALOPERIDOL [Suspect]
     Indication: PRODUCT USED FOR UNKNOWN INDICATION

REACTIONS (6)
  - HALLUCINATION, AUDITORY [None]
  - PARANOIA [None]
  - IMPAIRED SELF-CARE [None]
  - DRUG INEFFECTIVE [None]
  - INCONTINENCE [None]
  - WEIGHT DECREASED [None]
